FAERS Safety Report 6058048-X (Version None)
Quarter: 2009Q1

REPORT INFORMATION
  Report Type: 
  Country: None (occurrence: None)
  Receive Date: 20090127
  Receipt Date: 20090113
  Transmission Date: 20090719
  Serious: Yes (Hospitalization)
  Sender: FDA-Public Use
  Company Number: 0811-594

PATIENT
  Age: 51 Year
  Sex: Female
  Weight: 63.5036 kg

DRUGS (8)
  1. ARCALYST [Suspect]
     Indication: MUCKLE-WELLS SYNDROME
     Dosage: 160 MG, QWK, SUBCUTANEOUS; 320 MG, ONE DOSE, SUBCUTANEOUS
     Route: 058
     Dates: start: 20081119, end: 20081119
  2. ARCALYST [Suspect]
     Indication: MUCKLE-WELLS SYNDROME
     Dosage: 160 MG, QWK, SUBCUTANEOUS; 320 MG, ONE DOSE, SUBCUTANEOUS
     Route: 058
     Dates: start: 20081126
  3. VICODIN [Concomitant]
  4. BENADRYL [Concomitant]
  5. FLEXERIL [Concomitant]
  6. TENORMIN [Concomitant]
  7. CYMBALTA [Concomitant]
  8. KINERET [Concomitant]

REACTIONS (9)
  - DRUG INEFFECTIVE [None]
  - HEADACHE [None]
  - MUCKLE-WELLS SYNDROME [None]
  - MULTIPLE SCLEROSIS [None]
  - OCULAR HYPERAEMIA [None]
  - PAIN [None]
  - URINARY TRACT INFECTION [None]
  - VASCULITIS [None]
  - VIRAL INFECTION [None]
